FAERS Safety Report 4925028-4 (Version None)
Quarter: 2006Q1

REPORT INFORMATION
  Report Type: 
  Country: None (occurrence: None)
  Receive Date: 20060222
  Receipt Date: 20060105
  Transmission Date: 20060701
  Serious: Yes (Life-Threatening, Other)
  Sender: FDA-Public Use
  Company Number: COV2-2005-00034

PATIENT
  Age: 28 Year
  Sex: Male
  Weight: 54 kg

DRUGS (11)
  1. FOSRENOL [Suspect]
     Indication: HYPERPHOSPHATAEMIA
     Dosage: 750 MG, 3X/DAY:TID;ORAL
     Route: 048
     Dates: start: 20050314
  2. LIPITOR [Concomitant]
  3. PROTONIX [Concomitant]
  4. AVANDIA [Concomitant]
  5. EPOGEN [Concomitant]
  6. HECTOROL [Concomitant]
  7. VENOFER [Concomitant]
  8. CARDIZEM [Concomitant]
  9. ALTACE [Concomitant]
  10. FLOMAX ^CSL^ (TAMSULOSIN HYDROCHLORIDE) [Concomitant]
  11. LIPITOR [Concomitant]

REACTIONS (7)
  - BLOOD CREATININE INCREASED [None]
  - BLOOD GLUCOSE INCREASED [None]
  - BLOOD UREA INCREASED [None]
  - DIALYSIS [None]
  - HYPERKALAEMIA [None]
  - NAUSEA [None]
  - VOMITING [None]
